FAERS Safety Report 5736592-X (Version None)
Quarter: 2008Q2

REPORT INFORMATION
  Report Type: 
  Country: None (occurrence: None)
  Receive Date: 20080513
  Receipt Date: 20080507
  Transmission Date: 20081010
  Serious: Yes (Life-Threatening)
  Sender: FDA-Public Use
  Company Number: NP-ASTRAZENECA-2008AC01190

PATIENT
  Age: 53 Year
  Sex: Female

DRUGS (14)
  1. TAMOXIFEN CITRATE [Suspect]
     Indication: BREAST CANCER
     Dates: start: 20010101, end: 20060101
  2. TAMOXIFEN CITRATE [Interacting]
     Indication: PROPHYLACTIC CHEMOTHERAPY
     Dates: start: 20010101, end: 20060101
  3. WARFARIN SODIUM [Interacting]
  4. WARFARIN SODIUM [Interacting]
     Dosage: 1 MG TITRATED UP TO 2 MG.
  5. OMEPRAZOLE [Concomitant]
  6. DIGOXIN [Concomitant]
  7. CARVEDILOL [Concomitant]
  8. LOSARTAN POTASSIUM [Concomitant]
  9. FRUSEMIDE + SPIRONOLOCATONE [Concomitant]
     Dosage: 20/50 MG
  10. FUROSEMIDE [Concomitant]
  11. FUROSEMIDE [Concomitant]
  12. METOCLOPRAMIDE [Concomitant]
  13. VITAMIN B COMPLEX CAP [Concomitant]
  14. ALPHACALCIDOL [Concomitant]

REACTIONS (2)
  - DRUG INTERACTION [None]
  - INTERNATIONAL NORMALISED RATIO INCREASED [None]
